FAERS Safety Report 4989632-X (Version None)
Quarter: 2006Q2

REPORT INFORMATION
  Report Type: 
  Country: None (occurrence: None)
  Receive Date: 20060502
  Receipt Date: 20051116
  Transmission Date: 20061013
  Serious: Yes (Hospitalization)
  Sender: FDA-Public Use
  Company Number: US-MERCK-0511USA03137

PATIENT
  Age: 71 Year
  Sex: Female
  Weight: 66 kg

DRUGS (12)
  1. VIOXX [Suspect]
     Indication: OSTEOARTHRITIS
     Route: 048
     Dates: start: 19991201, end: 20020930
  2. PERSANTINE [Concomitant]
     Route: 065
  3. SYNTHROID [Concomitant]
     Route: 065
  4. CYTOMEL [Concomitant]
     Route: 065
  5. ESTRACE [Concomitant]
     Route: 065
  6. LIPITOR [Concomitant]
     Route: 065
  7. NEXIUM [Concomitant]
     Route: 065
  8. ADVAIR DISKUS 100/50 [Concomitant]
     Route: 065
  9. EVISTA [Concomitant]
     Route: 065
  10. CLARINEX [Concomitant]
     Route: 065
  11. FLOVENT [Concomitant]
     Route: 065
  12. NASONEX [Concomitant]
     Route: 065

REACTIONS (9)
  - ANXIETY [None]
  - DEPRESSION [None]
  - FALL [None]
  - FATIGUE [None]
  - HEAD INJURY [None]
  - HEADACHE [None]
  - ISCHAEMIC CEREBRAL INFARCTION [None]
  - PAIN [None]
  - POLLAKIURIA [None]
